FAERS Safety Report 8974167 (Version 1)
Quarter: 2012Q4

REPORT INFORMATION
  Report Type: Spontaneous
  Country: US (occurrence: None)
  Receive Date: 20121213
  Receipt Date: 20121213
  Transmission Date: 20130627
  Serious: No
  Sender: FDA-Public Use
  Company Number: None

PATIENT
  Age: 78 Year
  Sex: Female

DRUGS (2)
  1. REVLIMID 10 MG DAILY X21D/28D ORALLY [Suspect]
     Dosage: 10 MG DAILY X21D/28D ORALLY
     Route: 048
     Dates: start: 201208
  2. DEXAMETHASONE [Concomitant]

REACTIONS (2)
  - Muscle spasms [None]
  - Muscle spasms [None]
